FAERS Safety Report 10461221 (Version 5)
Quarter: 2014Q4

REPORT INFORMATION
  Report Type: Spontaneous
  Country: US (occurrence: US)
  Receive Date: 20140918
  Receipt Date: 20141112
  Transmission Date: 20150528
  Serious: Yes (Death)
  Sender: FDA-Public Use
  Company Number: US-PFIZER INC-2014256295

PATIENT
  Age: 51 Year
  Sex: Female
  Weight: 56.24 kg

DRUGS (7)
  1. MORPHINE [Concomitant]
     Active Substance: MORPHINE
  2. XANAX [Concomitant]
     Active Substance: ALPRAZOLAM
  3. SANDOSTATIN [Concomitant]
     Active Substance: OCTREOTIDE ACETATE
  4. MEGACE [Concomitant]
     Active Substance: MEGESTROL ACETATE
  5. SUTENT [Suspect]
     Active Substance: SUNITINIB MALATE
     Indication: NEOPLASM MALIGNANT
     Dosage: 37.5 MG, 1X/DAY
     Dates: start: 20140813
  6. HYDROCODONE [Concomitant]
     Active Substance: HYDROCODONE
  7. OMEPRAZOLE. [Concomitant]
     Active Substance: OMEPRAZOLE

REACTIONS (2)
  - Blood glucose abnormal [Unknown]
  - Death [Fatal]

NARRATIVE: CASE EVENT DATE: 201409
